FAERS Safety Report 10517917 (Version 1)
Quarter: 2014Q4

REPORT INFORMATION
  Report Type: Spontaneous
  Country: DK (occurrence: DK)
  Receive Date: 20141015
  Receipt Date: 20141015
  Transmission Date: 20150528
  Serious: Yes (Hospitalization)
  Sender: FDA-Public Use
  Company Number: DK-ROCHE-1473518

PATIENT
  Age: 49 Year
  Sex: Female

DRUGS (4)
  1. ZOMETA [Suspect]
     Active Substance: ZOLEDRONIC ACID
     Indication: METASTASES TO BONE
     Dosage: LAST DOSE ON 21/AUG/2013.
     Route: 042
     Dates: start: 20130424
  2. BONDRONAT [Suspect]
     Active Substance: IBANDRONIC ACID
     Indication: METASTASES TO BONE
     Dosage: LAST DOSE ON 01/JAN/2013.
     Route: 048
     Dates: start: 20120501
  3. ZOMETA [Suspect]
     Active Substance: ZOLEDRONIC ACID
     Indication: METASTASES TO BONE
     Route: 042
     Dates: start: 20140530, end: 20140601
  4. XGEVA [Suspect]
     Active Substance: DENOSUMAB
     Indication: METASTASES TO BONE
     Dosage: LAST DOSE ON 28/APR/2014.
     Route: 058
     Dates: start: 20130911

REACTIONS (2)
  - Osteonecrosis of jaw [Recovered/Resolved]
  - Sequestrectomy [Recovered/Resolved]

NARRATIVE: CASE EVENT DATE: 20140703
